FAERS Safety Report 9097918 (Version 2)
Quarter: 2013Q1

REPORT INFORMATION
  Report Type: Spontaneous
  Country: NZ (occurrence: NZ)
  Receive Date: 20130212
  Receipt Date: 20130226
  Transmission Date: 20140127
  Serious: Yes (Hospitalization)
  Sender: FDA-Public Use
  Company Number: NZ-BRISTOL-MYERS SQUIBB COMPANY-17366014

PATIENT
  Age: 68 Year
  Sex: Male

DRUGS (6)
  1. METFORMIN HCL [Suspect]
     Indication: DIABETES MELLITUS
     Dosage: JAN2009-01SEP2010:3000MG
     Route: 048
     Dates: start: 20100901, end: 20101001
  2. WARFARIN SODIUM [Suspect]
     Route: 048
     Dates: start: 200501
  3. ACCUPRIL [Concomitant]
     Route: 048
     Dates: start: 200801
  4. SIMVASTATIN [Concomitant]
     Route: 048
     Dates: start: 201210
  5. THYROXINE [Concomitant]
     Route: 048
     Dates: start: 200712
  6. BENDROFLUAZIDE [Concomitant]
     Route: 048
     Dates: start: 200609

REACTIONS (1)
  - Cerebrovascular accident [Recovered/Resolved]
